FAERS Safety Report 7921498-8 (Version None)
Quarter: 2011Q4

REPORT INFORMATION
  Report Type: 
  Country: None (occurrence: None)
  Receive Date: 20111117
  Receipt Date: 20111107
  Transmission Date: 20120403
  Serious: Yes (Hospitalization)
  Sender: FDA-Public Use
  Company Number: US-BAYER-2011-107682

PATIENT
  Sex: Male

DRUGS (4)
  1. GADAVIST [Suspect]
     Indication: NUCLEAR MAGNETIC RESONANCE IMAGING BRAIN
     Dosage: 10 ML, ONCE
     Dates: start: 20111104, end: 20111104
  2. BLOOD PRESSURE  MEDICATION [Concomitant]
  3. GADAVIST [Suspect]
     Indication: ANGIOGRAM CEREBRAL
  4. GADAVIST [Suspect]
     Indication: EYELID PTOSIS

REACTIONS (3)
  - NAUSEA [None]
  - PRESYNCOPE [None]
  - VOMITING [None]
